FAERS Safety Report 11481211 (Version 1)
Quarter: 2015Q3

REPORT INFORMATION
  Report Type: Spontaneous
  Country: US (occurrence: US)
  Receive Date: 20150909
  Receipt Date: 20150909
  Transmission Date: 20151125
  Serious: Yes (Other)
  Sender: FDA-Public Use
  Company Number: US-BAYER-2015-415647

PATIENT
  Age: 34 Year
  Sex: Female

DRUGS (2)
  1. MELATONIN [Concomitant]
     Active Substance: MELATONIN
  2. ALEVE [Suspect]
     Active Substance: NAPROXEN SODIUM
     Dosage: 30 DF, UNK
     Dates: start: 20150903

REACTIONS (1)
  - Intentional overdose [Unknown]
